FAERS Safety Report 10071933 (Version 2)
Quarter: 2014Q2

REPORT INFORMATION
  Report Type: Spontaneous
  Country: US (occurrence: US)
  Receive Date: 20140411
  Receipt Date: 20140501
  Transmission Date: 20141212
  Serious: No
  Sender: FDA-Public Use
  Company Number: US-009507513-1404USA004472

PATIENT
  Sex: Female
  Weight: 62.59 kg

DRUGS (3)
  1. MEVACOR TABLET [Suspect]
     Indication: BLOOD CHOLESTEROL INCREASED
     Route: 048
  2. PRAVACHOL [Suspect]
     Indication: BLOOD CHOLESTEROL INCREASED
  3. NIACIN [Suspect]

REACTIONS (1)
  - Drug ineffective [Unknown]
